FAERS Safety Report 17695774 (Version 2)
Quarter: 2020Q2

REPORT INFORMATION
  Report Type: Report from Study
  Country: US (occurrence: US)
  Receive Date: 20200422
  Receipt Date: 20200520
  Transmission Date: 20200714
  Serious: Yes (Other)
  Sender: FDA-Public Use
  Company Number: US-B.I. PHARMACEUTICALS,INC./RIDGEFIELD-2019-BI-105495

PATIENT
  Sex: Female

DRUGS (3)
  1. OFEV [Suspect]
     Active Substance: NINTEDANIB
     Indication: IDIOPATHIC PULMONARY FIBROSIS
     Dosage: TAKE 1 CAPSULE (100MG) BY MOUTH TWICE A DAY 12 HOURS APART WITH FOOD
     Route: 048
  2. OFEV [Suspect]
     Active Substance: NINTEDANIB
     Dosage: DOSAGE TEXT: 2 PILLS PER DAY 1 DAY AND 1 PILL PER DAY THE NEXT AND ALTERNATING
     Route: 048
  3. OFEV [Suspect]
     Active Substance: NINTEDANIB
     Dosage: RESUMED AT 1 EVERY OTHER DAY
     Route: 048

REACTIONS (13)
  - Epistaxis [Recovered/Resolved]
  - Dyspnoea exertional [Unknown]
  - Cough [Unknown]
  - Nausea [Unknown]
  - Cyanosis [Unknown]
  - Infection [Unknown]
  - Dyspnoea [Unknown]
  - Abdominal pain [Not Recovered/Not Resolved]
  - Headache [Recovered/Resolved]
  - Diarrhoea [Not Recovered/Not Resolved]
  - Bronchitis [Unknown]
  - Anticoagulation drug level abnormal [Unknown]
  - Back pain [Unknown]
